FAERS Safety Report 10022689 (Version 1)
Quarter: 2014Q1

REPORT INFORMATION
  Report Type: Spontaneous
  Country: CA (occurrence: CA)
  Receive Date: 20140319
  Receipt Date: 20140319
  Transmission Date: 20141002
  Serious: Yes (Other)
  Sender: FDA-Public Use
  Company Number: CA-PFIZER INC-2014077660

PATIENT
  Age: 44 Year
  Sex: Female

DRUGS (2)
  1. IBUPROFEN [Suspect]
  2. HYDRALAZINE HYDROCHLORIDE [Suspect]
     Dosage: 5 MG, TOTAL
     Route: 042

REACTIONS (2)
  - Dysgeusia [Unknown]
  - Palpitations [Unknown]
